FAERS Safety Report 9764213 (Version 2)
Quarter: 2013Q4

REPORT INFORMATION
  Report Type: Report from Study
  Country: AT (occurrence: AT)
  Receive Date: 20131216
  Receipt Date: 20131216
  Transmission Date: 20140711
  Serious: Yes (Other)
  Sender: FDA-Public Use
  Company Number: AT-CELGENEUS-009-21660-13092520

PATIENT
  Age: 37 Year
  Sex: Female
  Weight: 77 kg

DRUGS (10)
  1. ABRAXANE [Suspect]
     Indication: BREAST CANCER METASTATIC
     Route: 041
     Dates: start: 20130417
  2. ABRAXANE [Suspect]
     Route: 041
     Dates: start: 20130619
  3. ABRAXANE [Suspect]
     Route: 041
     Dates: start: 20130913, end: 20131105
  4. DIBONDRIN [Concomitant]
     Indication: PRODUCT USED FOR UNKNOWN INDICATION
     Route: 065
  5. ZANTAC [Concomitant]
     Indication: PRODUCT USED FOR UNKNOWN INDICATION
     Route: 065
  6. PANTOLOC [Concomitant]
     Indication: PRODUCT USED FOR UNKNOWN INDICATION
     Route: 065
  7. PERJETA [Concomitant]
     Indication: BREAST CANCER METASTATIC
     Route: 065
  8. TRASTUZUMAB [Concomitant]
     Indication: BREAST CANCER METASTATIC
     Route: 065
  9. TRASTUZUMAB [Concomitant]
     Route: 065
  10. TRASTUZUMAB [Concomitant]
     Route: 065

REACTIONS (2)
  - Hepatic lesion [Unknown]
  - Hypoaesthesia [Recovered/Resolved]
